FAERS Safety Report 6414391-3 (Version None)
Quarter: 2009Q4

REPORT INFORMATION
  Report Type: 
  Country: None (occurrence: None)
  Receive Date: 20091021
  Receipt Date: 20091009
  Transmission Date: 20100525
  Serious: Yes (Hospitalization)
  Sender: FDA-Public Use
  Company Number: 091014-0001071

PATIENT
  Age: 28 Year
  Sex: Female

DRUGS (4)
  1. COSMEGEN [Suspect]
     Indication: RHABDOMYOSARCOMA
     Dosage: 2.25 MG; QD; IV
     Route: 042
     Dates: start: 20090928, end: 20091002
  2. IFOSFAMIDE [Concomitant]
  3. ETOPOSIDE [Concomitant]
  4. ONCOVIN [Concomitant]

REACTIONS (4)
  - BONE MARROW FAILURE [None]
  - MUCOSAL INFLAMMATION [None]
  - PYREXIA [None]
  - SKIN EROSION [None]
